FAERS Safety Report 13295000 (Version 1)
Quarter: 2017Q1

REPORT INFORMATION
  Report Type: Spontaneous
  Country: GB (occurrence: GB)
  Receive Date: 20170303
  Receipt Date: 20170303
  Transmission Date: 20170428
  Serious: Yes (Hospitalization, Other)
  Sender: FDA-Public Use
  Company Number: GB-BAYER-2017-036744

PATIENT
  Age: 80 Year
  Sex: Female

DRUGS (7)
  1. CLOPIDOGREL [Concomitant]
     Active Substance: CLOPIDOGREL BISULFATE
     Dosage: 75 MG, QD
     Route: 048
  2. LANSOPRAZOLE. [Concomitant]
     Active Substance: LANSOPRAZOLE
     Dosage: 15 MG, QD
     Route: 048
  3. LEVOTHYROXINE. [Concomitant]
     Active Substance: LEVOTHYROXINE
     Dosage: 100 ?G, QOD
     Route: 048
  4. NAPROXEN SODIUM ({= 220 MG) [Suspect]
     Active Substance: NAPROXEN SODIUM
     Indication: MYALGIA
     Dosage: 250 MG, TID
     Route: 048
     Dates: start: 1971, end: 20170207
  5. NAPROXEN SODIUM ({= 220 MG) [Suspect]
     Active Substance: NAPROXEN SODIUM
     Indication: ANALGESIC THERAPY
  6. LEVOTHYROXINE. [Concomitant]
     Active Substance: LEVOTHYROXINE
     Dosage: 75 ?G, QOD
     Route: 048
  7. CANDESARTAN [Concomitant]
     Active Substance: CANDESARTAN
     Dosage: 2 MG, QD
     Route: 048
     Dates: end: 20170207

REACTIONS (5)
  - Gastrooesophageal reflux disease [Recovering/Resolving]
  - Hiatus hernia [Recovering/Resolving]
  - Gastritis [Recovering/Resolving]
  - Haematemesis [Recovering/Resolving]
  - Hernia [Recovering/Resolving]

NARRATIVE: CASE EVENT DATE: 20170206
